APPROVED DRUG PRODUCT: DIAZEPAM
Active Ingredient: DIAZEPAM
Strength: 5MG/ML
Dosage Form/Route: INJECTABLE;INJECTION
Application: A070662 | Product #001
Applicant: ABRAXIS PHARMACEUTICAL PRODUCTS
Approved: Jun 25, 1986 | RLD: No | RS: No | Type: DISCN